FAERS Safety Report 7689811-7 (Version None)
Quarter: 2011Q3

REPORT INFORMATION
  Report Type: 
  Country: None (occurrence: None)
  Receive Date: 20110818
  Receipt Date: 20110812
  Transmission Date: 20111222
  Serious: Yes (Hospitalization)
  Sender: FDA-Public Use
  Company Number: US-BIOGENIDEC-2011BI014334

PATIENT
  Age: 39 Year
  Sex: Female

DRUGS (2)
  1. TYSABRI [Suspect]
     Indication: MULTIPLE SCLEROSIS
     Route: 042
     Dates: start: 20110301
  2. MIGRAINE MEDICATION (NOS) [Concomitant]
     Indication: MIGRAINE

REACTIONS (6)
  - APHAGIA [None]
  - HALLUCINATION, VISUAL [None]
  - ABASIA [None]
  - URINARY TRACT INFECTION [None]
  - MENTAL STATUS CHANGES [None]
  - TREMOR [None]
